FAERS Safety Report 6876457-3 (Version None)
Quarter: 2010Q3

REPORT INFORMATION
  Report Type: 
  Country: None (occurrence: None)
  Receive Date: 20100727
  Receipt Date: 20100719
  Transmission Date: 20110219
  Serious: Yes (Other)
  Sender: FDA-Public Use
  Company Number: CN-PFIZER INC-2010086222

PATIENT
  Age: 18 Year
  Sex: Female

DRUGS (2)
  1. VFEND [Suspect]
     Indication: LUNG INFECTION
     Dosage: 0.2 G, 2X/DAY
     Route: 041
     Dates: start: 20100601, end: 20100601
  2. VFEND [Suspect]
     Indication: GASTROINTESTINAL FUNGAL INFECTION

REACTIONS (1)
  - EMBOLISM ARTERIAL [None]
